FAERS Safety Report 9843658 (Version 1)
Quarter: 2013Q4

REPORT INFORMATION
  Report Type: Spontaneous
  Country: US (occurrence: None)
  Receive Date: 20131223
  Receipt Date: 20131223
  Transmission Date: 20140711
  Serious: No
  Sender: FDA-Public Use
  Company Number: 220049LEO

PATIENT
  Age: 73 Year
  Sex: Male

DRUGS (1)
  1. PICATO 0.05%, GEL [Suspect]
     Indication: PRECANCEROUS SKIN LESION
     Route: 061
     Dates: start: 20130103

REACTIONS (3)
  - Eye irritation [None]
  - Accidental exposure to product [None]
  - Drug administered at inappropriate site [None]
